FAERS Safety Report 8484066-8 (Version None)
Quarter: 2012Q3

REPORT INFORMATION
  Report Type: 
  Country: None (occurrence: None)
  Receive Date: 20120703
  Receipt Date: 20120627
  Transmission Date: 20120928
  Serious: No
  Sender: FDA-Public Use
  Company Number: US-PFIZER INC-2012155833

PATIENT
  Sex: Male
  Weight: 70.295 kg

DRUGS (5)
  1. DILAUDID [Concomitant]
     Indication: NEURALGIA
  2. LYRICA [Suspect]
     Indication: NEURALGIA
  3. DILAUDID [Concomitant]
     Indication: SPINAL DISORDER
     Dosage: 1 DF, AS NEEDED
     Route: 048
  4. PROVENTIL [Concomitant]
     Indication: ASTHMA
     Dosage: UNK
  5. LYRICA [Suspect]
     Indication: SPINAL DISORDER
     Dosage: 200 MG, 2X/DAY
     Route: 048
     Dates: end: 20120101

REACTIONS (1)
  - NEURALGIA [None]
